FAERS Safety Report 14773829 (Version 2)
Quarter: 2018Q2

REPORT INFORMATION
  Report Type: Spontaneous
  Country: US (occurrence: US)
  Receive Date: 20180418
  Receipt Date: 20180613
  Transmission Date: 20180711
  Serious: Yes (Other)
  Sender: FDA-Public Use
  Company Number: US-AUROBINDO-AUR-APL-2018-020233

PATIENT
  Age: 22 Year
  Sex: Female

DRUGS (2)
  1. VANCOMYCIN [Suspect]
     Active Substance: VANCOMYCIN
     Indication: PNEUMONIA STAPHYLOCOCCAL
     Dosage: UNK
     Route: 065
  2. CEFTRIAXONE. [Suspect]
     Active Substance: CEFTRIAXONE
     Indication: PNEUMONIA STAPHYLOCOCCAL
     Dosage: UNK
     Route: 065

REACTIONS (10)
  - Rash [Recovering/Resolving]
  - Drug reaction with eosinophilia and systemic symptoms [Unknown]
  - Eosinophilia [Recovering/Resolving]
  - Erythema [Recovering/Resolving]
  - Langerhans^ cell histiocytosis [Recovered/Resolved]
  - Face oedema [Unknown]
  - Oedema peripheral [Unknown]
  - Localised oedema [Unknown]
  - Disease progression [Recovering/Resolving]
  - Respiratory failure [Recovered/Resolved]
